FAERS Safety Report 6493666-6 (Version None)
Quarter: 2009Q4

REPORT INFORMATION
  Report Type: 
  Country: None (occurrence: None)
  Receive Date: 20091214
  Receipt Date: 20091130
  Transmission Date: 20100525
  Serious: Yes (Hospitalization)
  Sender: FDA-Public Use
  Company Number: B0608296A

PATIENT
  Sex: Female

DRUGS (3)
  1. AUGMENTIN '125' [Suspect]
     Indication: DRUG USE FOR UNKNOWN INDICATION
     Route: 048
     Dates: start: 20091110, end: 20091117
  2. LACTACYD [Suspect]
     Indication: DRUG USE FOR UNKNOWN INDICATION
     Route: 061
  3. CARDIAC ANTI-ARRHYTHMIC MEDICATION [Concomitant]
     Indication: ARRHYTHMIA

REACTIONS (16)
  - ARTHRITIS [None]
  - CONDITION AGGRAVATED [None]
  - COUGH [None]
  - DERMATITIS [None]
  - DERMATITIS ALLERGIC [None]
  - HYPERAESTHESIA [None]
  - HYPERSENSITIVITY [None]
  - MYOCARDITIS [None]
  - OEDEMA [None]
  - PRURITUS [None]
  - PYREXIA [None]
  - RASH [None]
  - SKIN BURNING SENSATION [None]
  - SOFT TISSUE INFLAMMATION [None]
  - URTICARIA [None]
  - WHITE BLOOD CELL COUNT INCREASED [None]
